FAERS Safety Report 26080344 (Version 1)
Quarter: 2025Q4

REPORT INFORMATION
  Report Type: Spontaneous
  Country: US (occurrence: US)
  Receive Date: 20251124
  Receipt Date: 20251124
  Transmission Date: 20260117
  Serious: No
  Sender: SANOFI AVENTIS
  Company Number: US-SA-2025SA350563

PATIENT
  Sex: Female
  Weight: 49.89 kg

DRUGS (11)
  1. DUPIXENT [Suspect]
     Active Substance: DUPILUMAB
     Indication: Nasal polyps
     Dosage: 300 MG, QOW
     Route: 058
  2. PROGESTERONE [Concomitant]
     Active Substance: PROGESTERONE
  3. ESTRADIOL [Concomitant]
     Active Substance: ESTRADIOL
  4. PLAQUENIL [Concomitant]
     Active Substance: HYDROXYCHLOROQUINE SULFATE
  5. SYNTHROID [Concomitant]
     Active Substance: LEVOTHYROXINE SODIUM
  6. ZOLOFT [Concomitant]
     Active Substance: SERTRALINE HYDROCHLORIDE
  7. SINGULAIR [Concomitant]
     Active Substance: MONTELUKAST SODIUM
  8. PROAIR HFA [Concomitant]
     Active Substance: ALBUTEROL SULFATE
  9. ATROVENT HFA [Concomitant]
     Active Substance: IPRATROPIUM BROMIDE
  10. PREDNISOLONE [Concomitant]
     Active Substance: PREDNISOLONE
  11. SPIRIVA [Concomitant]
     Active Substance: TIOTROPIUM BROMIDE MONOHYDRATE

REACTIONS (1)
  - Nasopharyngitis [Unknown]
